FAERS Safety Report 21498827 (Version 1)
Quarter: 2022Q4

REPORT INFORMATION
  Report Type: Spontaneous
  Country: US (occurrence: None)
  Receive Date: 20221021
  Receipt Date: 20221021
  Transmission Date: 20230112
  Serious: No
  Sender: FDA-Public Use
  Company Number: None

PATIENT
  Age: 60 Year
  Sex: Female

DRUGS (1)
  1. HUMIRA [Suspect]
     Active Substance: ADALIMUMAB
     Indication: Psoriasis
     Dates: start: 20200309, end: 20220808

REACTIONS (5)
  - Urinary incontinence [None]
  - Therapy cessation [None]
  - Drug ineffective [None]
  - Metastases to bone [None]
  - Breast cancer metastatic [None]

NARRATIVE: CASE EVENT DATE: 20220801
